FAERS Safety Report 12285447 (Version 2)
Quarter: 2016Q2

REPORT INFORMATION
  Report Type: Report from Study
  Country: DE (occurrence: DE)
  Receive Date: 20160420
  Receipt Date: 20160504
  Transmission Date: 20160815
  Serious: Yes (Hospitalization)
  Sender: FDA-Public Use
  Company Number: DE-TEVA-652426GER

PATIENT
  Age: 62 Year
  Sex: Female
  Weight: 105 kg

DRUGS (4)
  1. PACLITAXEL. [Suspect]
     Active Substance: PACLITAXEL
     Indication: BREAST CANCER FEMALE
     Dosage: LAST DOSE PRIOR TO SAE: 05-APR-2016
     Route: 042
     Dates: start: 20160219
  2. PERTUZUMAB [Suspect]
     Active Substance: PERTUZUMAB
     Indication: BREAST CANCER FEMALE
     Dosage: 15 MILLIGRAM DAILY; LAST DOSE PRIOR TO SAE: 05-APR-2016
     Route: 042
     Dates: start: 20160217
  3. MYOCET [Suspect]
     Active Substance: DOXORUBICIN
     Indication: BREAST CANCER FEMALE
     Dosage: LAST DOSE PRIOR TO SAE: 05-APR-2016
     Route: 042
     Dates: start: 20160219
  4. HERCEPTIN [Suspect]
     Active Substance: TRASTUZUMAB
     Indication: BREAST CANCER FEMALE
     Dosage: .2143 MG/KG DAILY; LAST DOSE PRIOR TO SAE: 05-APR-2016
     Route: 042
     Dates: start: 20160217

REACTIONS (1)
  - General physical health deterioration [Recovered/Resolved]

NARRATIVE: CASE EVENT DATE: 20160409
